FAERS Safety Report 11114062 (Version 3)
Quarter: 2016Q1

REPORT INFORMATION
  Report Type: Report from Study
  Country: US (occurrence: US)
  Receive Date: 20150514
  Receipt Date: 20160331
  Transmission Date: 20160525
  Serious: Yes (Death, Hospitalization)
  Sender: FDA-Public Use
  Company Number: US-ACTELION-A-US2014-108826

PATIENT
  Age: 73 Year
  Sex: Female

DRUGS (5)
  1. REVATIO [Concomitant]
     Active Substance: SILDENAFIL CITRATE
  2. VELETRI [Suspect]
     Active Substance: EPOPROSTENOL
     Indication: PULMONARY ARTERIAL HYPERTENSION
     Dosage: 50 NG/KG, PER MIN
     Route: 042
     Dates: start: 20140530
  3. ASPIRIN. [Concomitant]
     Active Substance: ASPIRIN
  4. LETAIRIS [Concomitant]
     Active Substance: AMBRISENTAN
  5. OXYGEN. [Concomitant]
     Active Substance: OXYGEN

REACTIONS (11)
  - Transfusion [Unknown]
  - Gastric haemorrhage [Unknown]
  - Pain in jaw [Unknown]
  - Rash [Unknown]
  - Haemorrhage [Unknown]
  - Gastric disorder [Unknown]
  - Haemoglobin decreased [Unknown]
  - Death [Fatal]
  - Gastrointestinal haemorrhage [Unknown]
  - Hypotension [Unknown]
  - Fluid retention [Unknown]

NARRATIVE: CASE EVENT DATE: 20160316
